FAERS Safety Report 12394326 (Version 1)
Quarter: 2016Q2

REPORT INFORMATION
  Report Type: Report from Study
  Country: US (occurrence: US)
  Receive Date: 20160523
  Receipt Date: 20160523
  Transmission Date: 20160815
  Serious: Yes (Hospitalization, Other)
  Sender: FDA-Public Use
  Company Number: US-GILEAD-2016-0212815

PATIENT
  Age: 10 Year
  Sex: Female
  Weight: 41.5 kg

DRUGS (10)
  1. SILDENAFIL. [Concomitant]
     Active Substance: SILDENAFIL
  2. AMBRISENTAN [Suspect]
     Active Substance: AMBRISENTAN
     Indication: PULMONARY ARTERIAL HYPERTENSION
     Dosage: 5 MG, UNK
     Route: 065
     Dates: start: 20150409
  3. AMBRISENTAN [Suspect]
     Active Substance: AMBRISENTAN
     Indication: FALLOT^S TETRALOGY
     Dosage: 10 UNK, UNK
     Route: 048
  4. ZYRTEC [Concomitant]
     Active Substance: CETIRIZINE HYDROCHLORIDE
  5. AMOXIL                             /00249601/ [Concomitant]
     Active Substance: AMOXICILLIN
  6. QVAR [Concomitant]
     Active Substance: BECLOMETHASONE DIPROPIONATE
  7. AMBRISENTAN [Suspect]
     Active Substance: AMBRISENTAN
     Indication: CONGENITAL ARTERIAL MALFORMATION
  8. LASIX [Concomitant]
     Active Substance: FUROSEMIDE
  9. XOPENEX [Concomitant]
     Active Substance: LEVALBUTEROL HYDROCHLORIDE
  10. ZANTAC [Concomitant]
     Active Substance: RANITIDINE HYDROCHLORIDE

REACTIONS (2)
  - Off label use [Not Recovered/Not Resolved]
  - Seizure [Recovered/Resolved]

NARRATIVE: CASE EVENT DATE: 20150409
